FAERS Safety Report 7333866-6 (Version None)
Quarter: 2011Q1

REPORT INFORMATION
  Report Type: 
  Country: None (occurrence: None)
  Receive Date: 20110307
  Receipt Date: 20110228
  Transmission Date: 20110831
  Serious: Yes (Hospitalization, Other)
  Sender: FDA-Public Use
  Company Number: US-BIOGENIDEC-2011BI002650

PATIENT
  Age: 48 Year
  Sex: Male
  Weight: 114 kg

DRUGS (6)
  1. PREDNISONE [Concomitant]
  2. TYSABRI [Suspect]
     Indication: MULTIPLE SCLEROSIS
     Route: 042
     Dates: start: 20061208, end: 20101228
  3. CIALIS [Concomitant]
  4. ADDERALL 10 [Concomitant]
     Route: 048
  5. LOVAZA [Concomitant]
  6. ST. JOHN'S WORT [Concomitant]

REACTIONS (1)
  - PROGRESSIVE MULTIFOCAL LEUKOENCEPHALOPATHY [None]
